FAERS Safety Report 8190123-6 (Version None)
Quarter: 2012Q1

REPORT INFORMATION
  Report Type: 
  Country: None (occurrence: None)
  Receive Date: 20120305
  Receipt Date: 20120222
  Transmission Date: 20120608
  Serious: Yes (Other)
  Sender: FDA-Public Use
  Company Number: AUR-APL-2012-01173

PATIENT
  Age: 54 Year
  Sex: Female
  Weight: 77.1 kg

DRUGS (3)
  1. ZOCOR [Suspect]
     Indication: BLOOD CHOLESTEROL ABNORMAL
     Dosage: ORAL
     Route: 048
     Dates: end: 20110401
  2. METFORMIN HCL [Suspect]
     Indication: TYPE 2 DIABETES MELLITUS
  3. LAMOTRIGINE [Concomitant]

REACTIONS (4)
  - HALLUCINATION [None]
  - SURGERY [None]
  - HEART RATE IRREGULAR [None]
  - TYPE 2 DIABETES MELLITUS [None]
